FAERS Safety Report 9773066 (Version 1)
Quarter: 2013Q4

REPORT INFORMATION
  Report Type: Report from Study
  Country: US (occurrence: US)
  Receive Date: 20131219
  Receipt Date: 20131219
  Transmission Date: 20140711
  Serious: Yes (Hospitalization)
  Sender: FDA-Public Use
  Company Number: US-MERCK-1312USA006838

PATIENT
  Age: 73 Year
  Sex: Female
  Weight: 62 kg

DRUGS (2)
  1. ZOLINZA [Suspect]
     Indication: BREAST CANCER METASTATIC
     Dosage: 100 MG, QD
     Route: 048
     Dates: start: 20131031, end: 20131107
  2. ARIMIDEX [Concomitant]
     Dosage: UNK
     Dates: start: 20131031, end: 20131108

REACTIONS (7)
  - Pleural effusion [Unknown]
  - Leukocytosis [Unknown]
  - Breath sounds abnormal [Unknown]
  - Obstructive airways disorder [Unknown]
  - Chills [Not Recovered/Not Resolved]
  - Pyrexia [Recovered/Resolved]
  - Headache [Unknown]
